FAERS Safety Report 23708275 (Version 1)
Quarter: 2024Q2

REPORT INFORMATION
  Report Type: Spontaneous
  Country: US (occurrence: US)
  Receive Date: 20240404
  Receipt Date: 20240404
  Transmission Date: 20240716
  Serious: No
  Sender: FDA-Public Use
  Company Number: US-THE RITEDOSE CORPORATION-2023RIT000082

PATIENT

DRUGS (1)
  1. ALBUTEROL SULFATE [Suspect]
     Active Substance: ALBUTEROL SULFATE
     Indication: Product used for unknown indication
     Dosage: AS NEEDED
     Route: 055

REACTIONS (5)
  - Condition aggravated [Unknown]
  - Pulmonary congestion [Unknown]
  - Oxygen saturation decreased [Unknown]
  - Cough [Unknown]
  - Liquid product physical issue [Unknown]
